FAERS Safety Report 6703579-X (Version None)
Quarter: 2010Q2

REPORT INFORMATION
  Report Type: 
  Country: None (occurrence: None)
  Receive Date: 20100430
  Receipt Date: 20100419
  Transmission Date: 20101027
  Serious: Yes (Life-Threatening)
  Sender: FDA-Public Use
  Company Number: IT-PFIZER INC-2010051126

PATIENT
  Age: 81 Year
  Sex: Female

DRUGS (7)
  1. ATARAX [Suspect]
     Indication: PRURITUS
     Dosage: 25 MG, 1X/DAY
     Route: 048
     Dates: start: 20100210, end: 20100402
  2. ALLOPURINOL [Suspect]
     Indication: HYPERURICAEMIA
     Dosage: 300 MG, 1X/DAY
     Route: 048
     Dates: start: 20100210, end: 20100402
  3. FUROSEMIDE [Concomitant]
     Dosage: 50 MG, 1X/DAY
  4. DIGOXIN [Concomitant]
     Dosage: 0.12 MG, 1X/DAY
  5. BISOPROLOL [Concomitant]
     Dosage: 2.5 MG, 1X/DAY
     Route: 048
  6. CUMADIN [Concomitant]
     Dosage: UNK
  7. KANRENOL [Concomitant]
     Dosage: 100 MG, UNK

REACTIONS (1)
  - AGRANULOCYTOSIS [None]
